FAERS Safety Report 10370200 (Version 1)
Quarter: 2014Q3

REPORT INFORMATION
  Report Type: Report from Study
  Country: NZ (occurrence: NZ)
  Receive Date: 20140808
  Receipt Date: 20140808
  Transmission Date: 20150326
  Serious: Yes (Other)
  Sender: FDA-Public Use
  Company Number: PHHY2014NZ096619

PATIENT
  Sex: Male

DRUGS (3)
  1. CLOZARIL [Suspect]
     Active Substance: CLOZAPINE
     Dosage: 200 MG, (50 MG MANE AND 150 MG NOCTE)
     Dates: start: 20140707, end: 20140804
  2. CLONIDINE. [Concomitant]
     Active Substance: CLONIDINE
     Dosage: UNK
  3. METOPROLOL [Concomitant]
     Active Substance: METOPROLOL
     Dosage: UNK

REACTIONS (2)
  - Eosinophil count increased [Unknown]
  - Cardiotoxicity [Unknown]
